FAERS Safety Report 8579846-4 (Version None)
Quarter: 2012Q3

REPORT INFORMATION
  Report Type: 
  Country: None (occurrence: None)
  Receive Date: 20120808
  Receipt Date: 20120802
  Transmission Date: 20120928
  Serious: Yes (Death, Hospitalization, Other)
  Sender: FDA-Public Use
  Company Number: JP-ELI_LILLY_AND_COMPANY-JP201207006215

PATIENT
  Sex: Male
  Weight: 57 kg

DRUGS (17)
  1. JANUVIA [Concomitant]
     Indication: POLYURIA
     Dosage: 50 MG, QD
     Route: 048
     Dates: start: 20110114
  2. LYRICA [Concomitant]
     Indication: MICROSCOPIC POLYANGIITIS
     Dosage: UNK
     Route: 048
     Dates: start: 20110819
  3. ALINAMIN F [Concomitant]
     Indication: MICROSCOPIC POLYANGIITIS
     Dosage: 50 MG, BID
     Route: 048
     Dates: start: 20101214
  4. ALIMTA [Suspect]
     Indication: NON-SMALL CELL LUNG CANCER STAGE IIIB
     Dosage: 500 MG/M2, Q21D
     Route: 042
     Dates: start: 20120710, end: 20120710
  5. CARNACULIN                         /00088101/ [Concomitant]
     Indication: MICROSCOPIC POLYANGIITIS
     Dosage: 150 IU, TID
     Route: 048
     Dates: start: 20101214
  6. PREDNISOLONE [Concomitant]
     Indication: MICROSCOPIC POLYANGIITIS
     Dosage: 12.5 MG, QD
     Route: 048
     Dates: start: 20120522
  7. SENNOSIDE                          /00571901/ [Concomitant]
     Indication: CONSTIPATION
     Dosage: 24 MG, QD
     Route: 048
     Dates: start: 20120215
  8. GLIMEPIRIDE [Concomitant]
     Indication: POLYURIA
     Dosage: UNK
     Route: 048
     Dates: start: 20101227
  9. PROCATEROL HCL [Concomitant]
     Indication: EMPHYSEMA
     Dosage: 2 MG, QD
     Route: 062
     Dates: start: 20120215
  10. COLDRIN [Concomitant]
     Indication: LUNG NEOPLASM MALIGNANT
     Dosage: 75 MG, TID
     Route: 048
     Dates: start: 20120215
  11. VITAMIN B12 [Concomitant]
     Dosage: 1 MG, QD
     Route: 030
     Dates: start: 20120619
  12. GEMZAR [Suspect]
     Indication: NON-SMALL CELL LUNG CANCER STAGE IIIB
     Dosage: UNK
     Route: 042
     Dates: start: 20120221, end: 20120605
  13. VITAMIN B12 [Concomitant]
     Dosage: 1500 UG, QD
     Route: 048
     Dates: start: 20101214
  14. MUCODYNE [Concomitant]
     Indication: EMPHYSEMA
     Dosage: 1500 MG, TID
     Route: 048
     Dates: start: 20120215
  15. FOLIC ACID [Concomitant]
     Dosage: 1 G, QD
     Route: 048
     Dates: start: 20120619, end: 20120721
  16. CARBOPLATIN [Concomitant]
     Indication: LUNG ADENOCARCINOMA
     Dosage: UNK
     Dates: start: 20120221, end: 20120605
  17. METHYCOOL [Concomitant]
     Indication: MICROSCOPIC POLYANGIITIS
     Dosage: 1000 UG, BID
     Route: 048
     Dates: start: 20101214

REACTIONS (2)
  - NEOPLASM PROGRESSION [None]
  - INTERSTITIAL LUNG DISEASE [None]
